FAERS Safety Report 13815278 (Version 1)
Quarter: 2017Q3

REPORT INFORMATION
  Report Type: Spontaneous
  Country: US (occurrence: US)
  Receive Date: 20170731
  Receipt Date: 20170731
  Transmission Date: 20171127
  Serious: No
  Sender: FDA-Public Use
  Company Number: US-BAUSCH-BL-2017-007330

PATIENT
  Age: 72 Year
  Sex: Female

DRUGS (2)
  1. OPCON-A [Suspect]
     Active Substance: NAPHAZOLINE HYDROCHLORIDE\PHENIRAMINE MALEATE
     Indication: EYE DISORDER
     Dosage: USED AT EVERY NIGHT.
     Route: 047
     Dates: end: 20170316
  2. OPCON-A [Suspect]
     Active Substance: NAPHAZOLINE HYDROCHLORIDE\PHENIRAMINE MALEATE
     Indication: EYE DISORDER
     Dosage: USED AT EVERY NIGHT.
     Route: 047
     Dates: end: 20170316

REACTIONS (3)
  - Instillation site pain [Recovered/Resolved]
  - Instillation site irritation [Recovered/Resolved]
  - Product container issue [Unknown]
